FAERS Safety Report 7249127-X (Version None)
Quarter: 2011Q1

REPORT INFORMATION
  Report Type: 
  Country: None (occurrence: None)
  Receive Date: 20110128
  Receipt Date: 20101126
  Transmission Date: 20110831
  Serious: Yes (Other)
  Sender: FDA-Public Use
  Company Number: FR-BAYER-2010-004557

PATIENT
  Sex: Male

DRUGS (13)
  1. INTERFERON BETA-1B [Suspect]
     Dosage: 0.6 ML
     Route: 058
     Dates: start: 20101125
  2. RIVOTRIL [Concomitant]
  3. AMLOR [Concomitant]
  4. ESOMEPRAZOLE [Concomitant]
  5. KARDEGIC [Concomitant]
  6. IKOREL [Concomitant]
  7. SECTRAL [Concomitant]
  8. TRANSIPEG [Concomitant]
  9. INTERFERON BETA-1B [Suspect]
     Indication: MULTIPLE SCLEROSIS
     Dosage: 1.2 ML, UNK
     Route: 058
     Dates: start: 20101124
  10. TAHOR [Concomitant]
  11. PLAVIX [Concomitant]
  12. TEGRETOL [Concomitant]
  13. APROVEL [Concomitant]

REACTIONS (5)
  - HYPERHIDROSIS [None]
  - MALAISE [None]
  - CHILLS [None]
  - MUSCULAR WEAKNESS [None]
  - PARALYSIS [None]
